FAERS Safety Report 8589477-8 (Version None)
Quarter: 2012Q3

REPORT INFORMATION
  Report Type: 
  Country: None (occurrence: None)
  Receive Date: 20120813
  Receipt Date: 20120808
  Transmission Date: 20120928
  Serious: Yes (Other)
  Sender: FDA-Public Use
  Company Number: DE-VERTEX PHARMACEUTICALS INC.-000000000000001392

PATIENT
  Sex: Male
  Weight: 75 kg

DRUGS (3)
  1. INTERFERON [Concomitant]
     Dosage: DOSAGE FORM: INJECTION
     Dates: start: 20110901, end: 20120301
  2. RIBAVIRIN [Concomitant]
     Dosage: DOSAGE FORM: TABLETS
     Route: 048
     Dates: start: 20110901, end: 20120301
  3. INCIVO [Suspect]
     Indication: HEPATITIS C
     Dosage: DOSAGE FORM: TABLET
     Route: 048
     Dates: start: 20110901, end: 20120301

REACTIONS (6)
  - FATIGUE [None]
  - LETHARGY [None]
  - GINGIVITIS [None]
  - MENTAL DISORDER [None]
  - HEADACHE [None]
  - PRURITUS [None]
